FAERS Safety Report 19625880 (Version 1)
Quarter: 2021Q3

REPORT INFORMATION
  Report Type: Spontaneous
  Country: US (occurrence: US)
  Receive Date: 20210728
  Receipt Date: 20210728
  Transmission Date: 20211014
  Serious: Yes (Hospitalization)
  Sender: FDA-Public Use
  Company Number: None

PATIENT
  Sex: Male

DRUGS (4)
  1. AMOXICILLIN. [Concomitant]
     Active Substance: AMOXICILLIN
  2. BOTOX [Suspect]
     Active Substance: ONABOTULINUMTOXINA
     Indication: TORTICOLLIS
     Dosage: ?          OTHER FREQUENCY:Q 90 DAYS;?
     Route: 030
     Dates: start: 20180905
  3. NOURIANZ [Concomitant]
     Active Substance: ISTRADEFYLLINE
  4. BOTOX [Suspect]
     Active Substance: ONABOTULINUMTOXINA
     Indication: DYSTONIA
     Dosage: ?          OTHER FREQUENCY:Q 90 DAYS;?
     Route: 030
     Dates: start: 20180905

REACTIONS (1)
  - Sepsis [None]
